FAERS Safety Report 16359228 (Version 1)
Quarter: 2019Q2

REPORT INFORMATION
  Report Type: Spontaneous
  Country: US (occurrence: US)
  Receive Date: 20190527
  Receipt Date: 20190527
  Transmission Date: 20190711
  Serious: No
  Sender: FDA-Public Use
  Company Number: US-SA-2019SA140381

PATIENT
  Age: 26 Year
  Sex: Female

DRUGS (2)
  1. ADMELOG [Suspect]
     Active Substance: INSULIN LISPRO
     Dosage: 25 U, TID
     Route: 065
     Dates: start: 20180520
  2. BASAGLAR [Concomitant]
     Active Substance: INSULIN GLARGINE
     Dosage: UNK UNK, UNK
     Route: 065

REACTIONS (1)
  - Exposure during pregnancy [Unknown]
